FAERS Safety Report 20613884 (Version 5)
Quarter: 2023Q4

REPORT INFORMATION
  Report Type: Spontaneous
  Country: JP (occurrence: JP)
  Receive Date: 20220319
  Receipt Date: 20231102
  Transmission Date: 20240110
  Serious: Yes (Other)
  Sender: FDA-Public Use
  Company Number: JP-Teva Takeda Yakuhin-2022-JP-001167J

PATIENT
  Age: 81 Year
  Sex: Male
  Weight: 49 kg

DRUGS (3)
  1. ASPIRIN\LANSOPRAZOLE [Suspect]
     Active Substance: ASPIRIN\LANSOPRAZOLE
     Indication: Product used for unknown indication
     Dosage: DOSAGE IS UNKNOWN1 DOSAGE FORM = 100MG ASPIRIN + 15MG LANSOPRAZOLE
     Route: 048
     Dates: start: 20210814, end: 202201
  2. ASPIRIN\LANSOPRAZOLE [Suspect]
     Active Substance: ASPIRIN\LANSOPRAZOLE
     Dosage: 1 DOSAGE FORM = 100MG ASPIRIN + 15MG LANSOPRAZOLEDOSAGE IS UNKNOWN
     Route: 048
     Dates: end: 20220114
  3. ASPIRIN\LANSOPRAZOLE [Suspect]
     Active Substance: ASPIRIN\LANSOPRAZOLE
     Dosage: 1 DOSAGE FORM = 100MG ASPIRIN + 15MG LANSOPRAZOLE, DOSAGE IS UNKNOWN
     Route: 048
     Dates: start: 2022, end: 2022

REACTIONS (14)
  - Urinary bladder atrophy [Unknown]
  - Cataract [Unknown]
  - Anal incontinence [Unknown]
  - Frequent bowel movements [Unknown]
  - Weight decreased [Recovering/Resolving]
  - Pollakiuria [Recovering/Resolving]
  - Urinary incontinence [Recovering/Resolving]
  - Intestinal polyp [Unknown]
  - Faeces soft [Recovered/Resolved]
  - Diarrhoea [Recovered/Resolved]
  - Visual acuity reduced [Recovering/Resolving]
  - Hypoacusis [Unknown]
  - Therapy cessation [Unknown]
  - Ear discomfort [Unknown]

NARRATIVE: CASE EVENT DATE: 20210801
